FAERS Safety Report 8958437 (Version 1)
Quarter: 2012Q4

REPORT INFORMATION
  Report Type: Spontaneous
  Country: US (occurrence: None)
  Receive Date: 20121205
  Receipt Date: 20121205
  Transmission Date: 20130627
  Serious: Yes (Hospitalization, Other)
  Sender: FDA-Public Use
  Company Number: None

PATIENT
  Age: 11 Month
  Sex: Male

DRUGS (1)
  1. NTG [Suspect]
     Indication: IMPETIGO
     Dosage: unk, unk, Topical
     Route: 061
     Dates: start: 20120325

REACTIONS (2)
  - Skin exfoliation [None]
  - Staphylococcal scalded skin syndrome [None]
